FAERS Safety Report 9989610 (Version 1)
Quarter: 2014Q1

REPORT INFORMATION
  Report Type: Report from Study
  Country: US (occurrence: US)
  Receive Date: 20140310
  Receipt Date: 20140310
  Transmission Date: 20141002
  Serious: No
  Sender: FDA-Public Use
  Company Number: US-ABBVIE-13P-163-1132525-00

PATIENT
  Age: 26 Year
  Sex: Female
  Weight: 43.13 kg

DRUGS (5)
  1. HUMIRA [Suspect]
     Indication: CROHN^S DISEASE
     Dosage: ONE DOSE
     Dates: start: 201305, end: 201305
  2. HUMIRA [Suspect]
     Dosage: ONE DOSE TWO WEEKS AFTER 160 MG DOSE
     Dates: start: 2013, end: 2013
  3. HUMIRA [Suspect]
     Dosage: 4 WEEKS AFTER 160 MG DOSE
     Dates: start: 2013
  4. RIFAXIMIN [Concomitant]
     Indication: CROHN^S DISEASE
  5. PROBIOTICS [Concomitant]
     Indication: CROHN^S DISEASE

REACTIONS (3)
  - Device malfunction [Not Recovered/Not Resolved]
  - Incorrect dose administered [Not Recovered/Not Resolved]
  - Injection site pain [Not Recovered/Not Resolved]
